FAERS Safety Report 6755782-0 (Version None)
Quarter: 2010Q2

REPORT INFORMATION
  Report Type: 
  Country: None (occurrence: None)
  Receive Date: 20100604
  Receipt Date: 20100524
  Transmission Date: 20101027
  Serious: Yes (Hospitalization)
  Sender: FDA-Public Use
  Company Number: US-ELI_LILLY_AND_COMPANY-US201005007072

PATIENT
  Sex: Male

DRUGS (7)
  1. BYETTA [Suspect]
     Dosage: 5 UG, UNK
  2. METFORMIN HCL [Concomitant]
  3. ACE INHIBITOR NOS [Concomitant]
  4. HYDROCHLOROTHIAZIDE [Concomitant]
  5. SIMVASTATIN [Concomitant]
  6. ASPIRIN [Concomitant]
  7. INSULIN [Concomitant]

REACTIONS (3)
  - NAUSEA [None]
  - RENAL FAILURE [None]
  - VOMITING [None]
